FAERS Safety Report 13104387 (Version 1)
Quarter: 2017Q1

REPORT INFORMATION
  Report Type: Spontaneous
  Country: AU (occurrence: AU)
  Receive Date: 20170111
  Receipt Date: 20170111
  Transmission Date: 20170428
  Serious: Yes (Hospitalization)
  Sender: FDA-Public Use
  Company Number: AU-ARBOR PHARMACEUTICALS, LLC-AU-2017ARB000003

PATIENT
  Age: 49 Year
  Sex: Female

DRUGS (1)
  1. ERYTHROMYCIN. [Suspect]
     Active Substance: ERYTHROMYCIN
     Indication: PNEUMONIA
     Dosage: 500 MG, 6-HOURLY 10:00, 16:00 AND 22:00
     Route: 042

REACTIONS (3)
  - Electrocardiogram QT prolonged [Recovered/Resolved]
  - Atrioventricular block complete [Recovered/Resolved]
  - Cardiac arrest [Recovered/Resolved]
